FAERS Safety Report 5836725-0 (Version None)
Quarter: 2008Q3

REPORT INFORMATION
  Report Type: 
  Country: None (occurrence: None)
  Receive Date: 20080807
  Receipt Date: 20080804
  Transmission Date: 20090109
  Serious: Yes (Death)
  Sender: FDA-Public Use
  Company Number: US-WYE-H05363908

PATIENT
  Age: 19 Month
  Sex: Male

DRUGS (1)
  1. ROBITUSSIN DM [Suspect]
     Indication: COUGH
     Dosage: UNKNOWN X 1
     Route: 048
     Dates: start: 20070825, end: 20070825

REACTIONS (1)
  - CIRCULATORY COLLAPSE [None]
